FAERS Safety Report 5090943-0 (Version None)
Quarter: 2006Q3

REPORT INFORMATION
  Report Type: 
  Country: None (occurrence: None)
  Receive Date: 20060823
  Receipt Date: 20060814
  Transmission Date: 20061208
  Serious: Yes (Hospitalization)
  Sender: FDA-Public Use
  Company Number: FABR-11617

PATIENT
  Age: 40 Year
  Sex: Female
  Weight: 91 kg

DRUGS (1)
  1. FABRAZYME [Suspect]
     Indication: FABRY'S DISEASE
     Dosage: 80 MG Q2WKS IV
     Route: 042
     Dates: start: 20060101

REACTIONS (1)
  - TACHYCARDIA [None]
